FAERS Safety Report 10365773 (Version 2)
Quarter: 2024Q2

REPORT INFORMATION
  Report Type: Report from Study
  Country: US (occurrence: US)
  Receive Date: 20140806
  Receipt Date: 20240508
  Transmission Date: 20240716
  Serious: Yes (Hospitalization)
  Sender: FDA-Public Use
  Company Number: US-PFIZER INC-2014214957

PATIENT
  Age: 14 Year
  Sex: Female

DRUGS (5)
  1. DOXYCYCLINE HYCLATE [Suspect]
     Active Substance: DOXYCYCLINE HYCLATE
     Indication: Suicidal ideation
     Dosage: UNK
     Route: 048
  2. OMEPRAZOLE [Suspect]
     Active Substance: DONEPEZIL HYDROCHLORIDE\OMEPRAZOLE\OMEPRAZOLE MAGNESIUM
     Indication: Suicidal ideation
     Dosage: UNK
     Route: 048
  3. CITALOPRAM [Suspect]
     Active Substance: CITALOPRAM\CITALOPRAM HYDROBROMIDE
     Indication: Suicidal ideation
     Dosage: UNK
     Route: 048
  4. MELATONIN [Suspect]
     Active Substance: MELATONIN
     Indication: Suicidal ideation
     Dosage: UNK
     Route: 048
  5. OXCARBAZEPINE [Suspect]
     Active Substance: OXCARBAZEPINE
     Indication: Suicidal ideation
     Dosage: UNK
     Route: 048

REACTIONS (3)
  - Intentional overdose [Unknown]
  - Mental status changes [Unknown]
  - Vomiting [Unknown]
